FAERS Safety Report 23616316 (Version 1)
Quarter: 2024Q1

REPORT INFORMATION
  Report Type: Report from Study
  Country: DO (occurrence: DO)
  Receive Date: 20240311
  Receipt Date: 20240311
  Transmission Date: 20240409
  Serious: Yes (Life-Threatening)
  Sender: FDA-Public Use
  Company Number: DO-002147023-NVSC2024DO049802

PATIENT
  Age: 73 Year
  Sex: Female

DRUGS (1)
  1. INCLISIRAN [Suspect]
     Active Substance: INCLISIRAN
     Indication: Blood cholesterol increased
     Dosage: 284 MG, PATIENT CONSUMED MONTH 0 AND MONTH 3
     Route: 058
     Dates: start: 20230623

REACTIONS (8)
  - Coma [Recovering/Resolving]
  - General physical health deterioration [Unknown]
  - Urosepsis [Unknown]
  - Blood pressure increased [Unknown]
  - Blood glucose increased [Unknown]
  - Hepatic failure [Unknown]
  - Haemoglobin decreased [Unknown]
  - Cerebrovascular accident [Unknown]

NARRATIVE: CASE EVENT DATE: 20231001
